FAERS Safety Report 6333397-6 (Version None)
Quarter: 2009Q3

REPORT INFORMATION
  Report Type: 
  Country: None (occurrence: None)
  Receive Date: 20090828
  Receipt Date: 20090820
  Transmission Date: 20100115
  Serious: Yes (Hospitalization)
  Sender: FDA-Public Use
  Company Number: DE-ABBOTT-09P-062-0593264-00

PATIENT
  Age: 72 Year
  Sex: Male
  Weight: 90 kg

DRUGS (14)
  1. AKINETON [Suspect]
     Indication: CEREBROVASCULAR ACCIDENT
     Route: 048
     Dates: start: 20040101, end: 20090621
  2. ARICEPT [Suspect]
     Indication: DEMENTIA
     Route: 048
     Dates: start: 20040101
  3. BISOPROLOL [Suspect]
     Indication: HYPERTENSION
     Route: 048
     Dates: start: 20051201, end: 20090621
  4. DIPIPERON [Suspect]
     Indication: CEREBROVASCULAR ACCIDENT
     Route: 048
     Dates: start: 20040101
  5. HYDROCHLOROTHIAZIDE [Suspect]
     Indication: HYPERTENSION
     Route: 048
     Dates: start: 20000101
  6. ANTELEPSIN [Concomitant]
     Indication: CEREBROVASCULAR ACCIDENT
     Route: 048
     Dates: start: 20050101
  7. ATACAND [Concomitant]
     Indication: HYPERTENSION
     Route: 048
     Dates: start: 20000101
  8. CONVULEX [Concomitant]
     Indication: CEREBROVASCULAR ACCIDENT
     Route: 048
     Dates: start: 20040101
  9. DAPOTUM [Concomitant]
     Indication: DRUG USE FOR UNKNOWN INDICATION
     Route: 042
     Dates: start: 20040101
  10. INSULIN ACTRAPID [Concomitant]
     Indication: TYPE 2 DIABETES MELLITUS
  11. INSULIN PROTAPHAN HM [Concomitant]
     Indication: TYPE 2 DIABETES MELLITUS
     Route: 058
  12. PANTOZOL [Concomitant]
     Indication: PROPHYLAXIS AGAINST GASTROINTESTINAL ULCER
     Route: 048
     Dates: start: 20040101
  13. PLAVIX [Concomitant]
     Indication: CEREBROVASCULAR ACCIDENT
     Route: 048
     Dates: start: 20040101
  14. RAMIPRIL [Concomitant]
     Indication: HYPERTENSION
     Route: 048
     Dates: start: 20000101

REACTIONS (2)
  - BRADYCARDIA [None]
  - HYPONATRAEMIA [None]
